FAERS Safety Report 18966662 (Version 1)
Quarter: 2021Q1

REPORT INFORMATION
  Report Type: Spontaneous
  Country: US (occurrence: US)
  Receive Date: 20210304
  Receipt Date: 20210304
  Transmission Date: 20210420
  Serious: Yes (Other)
  Sender: FDA-Public Use
  Company Number: US-BRISTOL-MYERS SQUIBB COMPANY-BMS-2021-017618

PATIENT
  Age: 39 Year
  Sex: Male

DRUGS (3)
  1. CYTARABINE. [Suspect]
     Active Substance: CYTARABINE
     Indication: CHRONIC MYELOID LEUKAEMIA
     Dosage: 100 MG/M2 FROM DAY 1 TO DAY 7
     Route: 041
  2. DAUNORUBICIN [Suspect]
     Active Substance: DAUNORUBICIN
     Indication: CHRONIC MYELOID LEUKAEMIA
     Dosage: 90 MG/M2 ON DAY 1, DAY 2 AND DAY 3
     Route: 065
  3. DASATINIB. [Suspect]
     Active Substance: DASATINIB
     Indication: CHRONIC MYELOID LEUKAEMIA
     Dosage: 140 MILLIGRAM, QD
     Route: 065

REACTIONS (4)
  - Pleural effusion [Unknown]
  - Splenic abscess [Unknown]
  - Abscess [Unknown]
  - Pulmonary embolism [Unknown]
